FAERS Safety Report 7826778-2 (Version None)
Quarter: 2011Q4

REPORT INFORMATION
  Report Type: 
  Country: None (occurrence: None)
  Receive Date: 20111020
  Receipt Date: 20111005
  Transmission Date: 20120403
  Serious: Yes (Hospitalization)
  Sender: FDA-Public Use
  Company Number: US-BAYER-2011-050557

PATIENT
  Age: 36 Year
  Sex: Female
  Weight: 91 kg

DRUGS (15)
  1. RANITIDINE [Concomitant]
     Indication: DYSPEPSIA
     Dosage: 150 MG, BID
     Route: 048
     Dates: start: 20080501
  2. CYCLOBENZAPRINE [Concomitant]
     Indication: ARTHRALGIA
  3. LISINOPRIL [Concomitant]
     Indication: HYPERTENSION
     Dosage: DAILY DOSE 10 MG
     Route: 048
     Dates: start: 20090301
  4. METROGEL [Concomitant]
  5. DROSPIRENONE AND ETHINYL ESTRADIOL [Suspect]
     Indication: OVARIAN CYST
     Dosage: UNK
     Route: 048
     Dates: start: 20090501, end: 20100101
  6. IBUPROFEN [Concomitant]
     Dosage: UNK
     Dates: start: 20081001
  7. ACETAMINOPHEN W/ PROPOXYPHENE HCL [Concomitant]
     Indication: PAIN
     Dosage: UNK UNK, PRN
     Route: 048
     Dates: start: 20081001
  8. YAZ [Suspect]
     Indication: PAIN
  9. CLONAZEPAM [Concomitant]
     Indication: SLEEP DISORDER
     Dosage: 0.5 MG, BID
     Route: 048
     Dates: start: 20081001
  10. ERGOCALCIFEROL [Concomitant]
     Indication: BONE PAIN
     Dosage: DAILY DOSE 800 U
     Route: 048
     Dates: start: 20081001
  11. YAZ [Suspect]
     Indication: OVARIAN CYST
     Dosage: UNK
     Route: 048
     Dates: start: 20080501, end: 20090501
  12. CIPROFLOXACIN [Concomitant]
  13. DROSPIRENONE AND ETHINYL ESTRADIOL [Suspect]
     Indication: PAIN
  14. NEXIUM [Concomitant]
     Dosage: DAILY DOSE 40 MG
     Route: 048
  15. CYCLOBENZAPRINE [Concomitant]
     Indication: MUSCLE DISORDER
     Dosage: UNK UNK, TID
     Route: 048
     Dates: start: 20081001

REACTIONS (6)
  - PAIN [None]
  - FIBROMYALGIA [None]
  - CHOLECYSTITIS CHRONIC [None]
  - HEADACHE [None]
  - GALLBLADDER DISORDER [None]
  - MIGRAINE [None]
